FAERS Safety Report 6475079-6 (Version None)
Quarter: 2009Q4

REPORT INFORMATION
  Report Type: 
  Country: None (occurrence: None)
  Receive Date: 20091204
  Receipt Date: 20090602
  Transmission Date: 20100525
  Serious: Yes (Death)
  Sender: FDA-Public Use
  Company Number: US-ELI_LILLY_AND_COMPANY-US200904000235

PATIENT
  Sex: Male

DRUGS (2)
  1. CYMBALTA [Suspect]
     Dosage: 120 MG, EACH EVENING
     Dates: start: 20081208
  2. ZYPREXA [Suspect]
     Dosage: 5 MG, EACH EVENING
     Dates: start: 20081101

REACTIONS (3)
  - COMPLETED SUICIDE [None]
  - DEMENTIA ALZHEIMER'S TYPE [None]
  - DEPRESSION [None]
